FAERS Safety Report 25178772 (Version 2)
Quarter: 2025Q2

REPORT INFORMATION
  Report Type: Spontaneous
  Country: US (occurrence: US)
  Receive Date: 20250409
  Receipt Date: 20250411
  Transmission Date: 20250717
  Serious: No
  Sender: TORRENT
  Company Number: US-TORRENT-00014282

PATIENT
  Age: 36 Year
  Sex: Female
  Weight: 86 kg

DRUGS (1)
  1. TIOPRONIN [Suspect]
     Active Substance: TIOPRONIN
     Indication: Cystinuria
     Dosage: ONE 300 MG TABLET TWICE DAILY
     Route: 065
     Dates: start: 20250327

REACTIONS (1)
  - Off label use [Unknown]

NARRATIVE: CASE EVENT DATE: 20250327
